FAERS Safety Report 4699902-0 (Version None)
Quarter: 2005Q2

REPORT INFORMATION
  Report Type: 
  Country: None (occurrence: None)
  Receive Date: 20050624
  Receipt Date: 20050318
  Transmission Date: 20051028
  Serious: Yes (Hospitalization)
  Sender: FDA-Public Use
  Company Number: US-MERCK-0503USA03847

PATIENT
  Age: 61 Year
  Sex: Male
  Weight: 95 kg

DRUGS (8)
  1. VIOXX [Suspect]
     Indication: PAIN IN EXTREMITY
     Route: 048
     Dates: start: 20010521, end: 20020121
  2. NORVASC [Concomitant]
     Route: 065
     Dates: start: 20010101
  3. PAXIL [Concomitant]
     Route: 065
     Dates: start: 20010101, end: 20040101
  4. PLAVIX [Concomitant]
     Route: 065
     Dates: start: 20000101
  5. PRINIVIL [Concomitant]
     Route: 065
  6. HYDROCHLOROTHIAZIDE [Concomitant]
     Route: 065
  7. CARDURA [Concomitant]
     Route: 065
  8. BUSPIRONE HYDROCHLORIDE [Concomitant]
     Route: 065

REACTIONS (9)
  - ABDOMINAL PAIN UPPER [None]
  - CEREBROVASCULAR ACCIDENT [None]
  - CHEST PAIN [None]
  - FALL [None]
  - HAEMATURIA [None]
  - POLYP [None]
  - SPINAL COLUMN STENOSIS [None]
  - SYNCOPE [None]
  - URINARY RETENTION [None]
